FAERS Safety Report 9754522 (Version 7)
Quarter: 2014Q1

REPORT INFORMATION
  Report Type: Spontaneous
  Country: VN (occurrence: VN)
  Receive Date: 20131213
  Receipt Date: 20140103
  Transmission Date: 20141002
  Serious: Yes (Death, Other)
  Sender: FDA-Public Use
  Company Number: VN-PFIZER INC-2013356262

PATIENT
  Age: 18 Month
  Sex: Female

DRUGS (5)
  1. SOLU-MEDROL [Suspect]
     Indication: ASTHMA
     Dosage: 20 MG
     Route: 042
     Dates: start: 20131211, end: 20131211
  2. CEFTAZIDIME [Concomitant]
     Indication: BRONCHIOLITIS
     Dosage: 100 MG/KG, 3X/DAY
     Route: 030
  3. GENTAMYCIN [Concomitant]
     Indication: BRONCHIOLITIS
     Dosage: UNK
  4. PULMICORT [Concomitant]
     Indication: ASTHMA
     Dosage: UNK
  5. VENTOLIN [Concomitant]
     Indication: ASTHMA
     Dosage: UNK

REACTIONS (1)
  - Anaphylactic shock [Fatal]
